FAERS Safety Report 9720391 (Version 1)
Quarter: 2013Q4

REPORT INFORMATION
  Report Type: Spontaneous
  Country: US (occurrence: US)
  Receive Date: 20131129
  Receipt Date: 20131129
  Transmission Date: 20140711
  Serious: Yes (Hospitalization)
  Sender: FDA-Public Use
  Company Number: US-ROCHE-1306112

PATIENT
  Age: 46 Year
  Sex: Male

DRUGS (10)
  1. RITUXAN [Suspect]
     Indication: PRODUCT USED FOR UNKNOWN INDICATION
     Dosage: 10MG/ML
     Route: 042
  2. DILTIAZEM [Concomitant]
  3. ZOCOR [Concomitant]
     Route: 065
     Dates: end: 201012
  4. ZOCOR [Concomitant]
     Route: 065
     Dates: start: 201105
  5. ZOLOFT [Concomitant]
     Route: 065
     Dates: start: 201112
  6. VENOFER [Concomitant]
     Route: 065
  7. ASPIRIN [Concomitant]
     Route: 065
  8. SEROQUEL [Concomitant]
     Indication: SLEEP APNOEA SYNDROME
  9. ATOVAQUONE [Concomitant]
     Route: 065
     Dates: start: 201105
  10. MEPRON (UNITED STATES) [Concomitant]
     Route: 065
     Dates: start: 201105

REACTIONS (11)
  - Convulsion [Recovered/Resolved]
  - Vomiting [Recovered/Resolved]
  - Diarrhoea [Recovered/Resolved]
  - Arthralgia [Recovered/Resolved]
  - Fatigue [Recovered/Resolved]
  - Abdominal discomfort [Recovered/Resolved]
  - Therapeutic response unexpected [Recovered/Resolved]
  - Mental disorder [Recovered/Resolved]
  - Disability [Recovered/Resolved]
  - Arthralgia [Recovered/Resolved]
  - Epilepsy [Recovered/Resolved]
